FAERS Safety Report 6274619-X (Version None)
Quarter: 2009Q3

REPORT INFORMATION
  Report Type: 
  Country: None (occurrence: None)
  Receive Date: 20090717
  Receipt Date: 20090708
  Transmission Date: 20100115
  Serious: Yes (Other)
  Sender: FDA-Public Use
  Company Number: 2009US002717

PATIENT

DRUGS (1)
  1. PROGRAF [Suspect]
     Indication: RENAL TRANSPLANT

REACTIONS (1)
  - ARTHRITIS REACTIVE [None]
